FAERS Safety Report 24155035 (Version 2)
Quarter: 2024Q4

REPORT INFORMATION
  Report Type: Spontaneous
  Country: US (occurrence: US)
  Receive Date: 20240731
  Receipt Date: 20241029
  Transmission Date: 20250115
  Serious: Yes (Other)
  Sender: TEVA
  Company Number: US-TEVA-VS-3225967

PATIENT
  Age: 65 Year
  Sex: Male
  Weight: 96.162 kg

DRUGS (5)
  1. HYDROCHLOROTHIAZIDE\VALSARTAN [Suspect]
     Active Substance: HYDROCHLOROTHIAZIDE\VALSARTAN
     Indication: Hypertension
     Route: 065
     Dates: start: 20120410, end: 20170612
  2. FISH OIL [Concomitant]
     Active Substance: FISH OIL
     Indication: Vitamin supplementation
     Dosage: DOSAGE AND FREQUENCY OF USE: 1
     Route: 065
     Dates: start: 2003
  3. VITAMINS [Concomitant]
     Active Substance: VITAMINS
     Indication: Vitamin supplementation
     Dosage: DOSAGE AND FREQUENCY OF USE: 1
     Route: 065
     Dates: start: 1991
  4. VITAMIN D [Concomitant]
     Active Substance: VITAMIN D NOS
     Indication: Vitamin supplementation
     Dosage: DOSAGE AND FREQUENCY OF USE: 1
     Route: 065
     Dates: start: 2010
  5. CALCIUM [Concomitant]
     Active Substance: CALCIUM
     Indication: Vitamin supplementation
     Dosage: DOSAGE AND FREQUENCY OF USE: 2
     Route: 065
     Dates: start: 2021

REACTIONS (1)
  - Prostate cancer [Unknown]

NARRATIVE: CASE EVENT DATE: 20230801
